FAERS Safety Report 9571209 (Version 2)
Quarter: 2013Q4

REPORT INFORMATION
  Report Type: Report from Study
  Country: AU (occurrence: AU)
  Receive Date: 20131001
  Receipt Date: 20131010
  Transmission Date: 20140711
  Serious: Yes (Hospitalization, Other)
  Sender: FDA-Public Use
  Company Number: PHHY2013AU108670

PATIENT
  Age: 87 Year
  Sex: Female

DRUGS (10)
  1. ACLASTA [Suspect]
     Dosage: 5MG/100ML
     Route: 042
     Dates: start: 20090708
  2. ACLASTA [Suspect]
     Dosage: 5MG/100ML
     Route: 042
     Dates: start: 20100622
  3. ACLASTA [Suspect]
     Dosage: 5MG/100ML
     Route: 042
     Dates: start: 20111005
  4. ACLASTA [Suspect]
     Dosage: 5MG/100ML
     Route: 042
     Dates: start: 20120927
  5. DORYX [Concomitant]
     Dosage: 02 ON FORST DAY AND THEN 1 CAPSULE DAILY AFTER MAIN MEAL
     Route: 048
  6. ELOCON [Concomitant]
     Dosage: 1 DF, QD (APPLY ONCE DAILY)
     Route: 061
  7. OSTELIN VITAMIN D [Concomitant]
     Dosage: 1 DF, MANE
  8. PREMARIN [Concomitant]
     Dosage: 1 DF, MANE
  9. QUININE SULFATE [Concomitant]
     Indication: MUSCLE SPASMS
     Dosage: 1 DF, NOCTE
     Route: 048
  10. SIFROL [Concomitant]
     Dosage: 1 DF NOCTE 02 HOURS BEFORE RETINING

REACTIONS (4)
  - Abdominal adhesions [Recovered/Resolved]
  - Abdominal pain [Recovered/Resolved]
  - Intestinal obstruction [Recovered/Resolved]
  - Diverticulitis [Recovered/Resolved]
